FAERS Safety Report 7966154-5 (Version None)
Quarter: 2011Q4

REPORT INFORMATION
  Report Type: 
  Country: None (occurrence: None)
  Receive Date: 20111208
  Receipt Date: 20111206
  Transmission Date: 20120403
  Serious: No
  Sender: FDA-Public Use
  Company Number: US-PFIZER INC-2011268050

PATIENT
  Age: 92 Year
  Sex: Female

DRUGS (3)
  1. XALATAN [Suspect]
     Indication: EYE DISORDER
     Dosage: 1 GTT IN EACH EYE, 1X/DAY
     Route: 047
  2. XALATAN [Suspect]
     Indication: VISUAL IMPAIRMENT
     Dosage: UNK
  3. LATANOPROST [Suspect]
     Dosage: UNK

REACTIONS (4)
  - EYE IRRITATION [None]
  - FEELING ABNORMAL [None]
  - DRUG INEFFECTIVE [None]
  - URTICARIA [None]
